FAERS Safety Report 8833371 (Version 2)
Quarter: 2013Q1

REPORT INFORMATION
  Report Type: Spontaneous
  Country: FR (occurrence: FR)
  Receive Date: 20121010
  Receipt Date: 20130226
  Transmission Date: 20140127
  Serious: Yes (Other)
  Sender: FDA-Public Use
  Company Number: FR-PFIZER INC-2012248476

PATIENT
  Sex: Male

DRUGS (1)
  1. AMLOR [Suspect]

REACTIONS (1)
  - Anaphylactic shock [Unknown]
